FAERS Safety Report 9146621 (Version 1)
Quarter: 2013Q1

REPORT INFORMATION
  Report Type: Spontaneous
  Country: US (occurrence: None)
  Receive Date: 20130214
  Receipt Date: 20130214
  Transmission Date: 20140127
  Serious: Yes (Death)
  Sender: FDA-Public Use
  Company Number: 2013HINLIT0009

PATIENT
  Age: 39 Year
  Sex: Male

DRUGS (7)
  1. TENOFOVIR [Suspect]
     Indication: ANTIRETROVIRAL THERAPY
  2. LOPINAVIR + RITONAVIR [Suspect]
     Indication: ANTIRETROVIRAL THERAPY
  3. EMTRICITABINE [Suspect]
     Indication: ANTIRETROVIRAL THERAPY
  4. DAPSONE [Suspect]
     Indication: ANTIRETROVIRAL THERAPY
  5. AZITHROMYCIN [Suspect]
     Indication: ANTIRETROVIRAL THERAPY
  6. ETHAMBUTOL [Suspect]
     Indication: ANTIRETROVIRAL THERAPY
  7. DIVALPROEX [Suspect]
     Indication: ANTIRETROVIRAL THERAPY

REACTIONS (9)
  - Vanishing bile duct syndrome [None]
  - Rales [None]
  - Pancytopenia [None]
  - Renal failure acute [None]
  - Lung infiltration [None]
  - Hepatomegaly [None]
  - Pneumonia [None]
  - Haemodialysis [None]
  - Metabolic acidosis [None]
